FAERS Safety Report 24569064 (Version 1)
Quarter: 2024Q4

REPORT INFORMATION
  Report Type: Spontaneous
  Country: ZA (occurrence: ZA)
  Receive Date: 20241031
  Receipt Date: 20241031
  Transmission Date: 20250114
  Serious: Yes (Hospitalization)
  Sender: PFIZER
  Company Number: ZA-PFIZER INC-PV202400138728

PATIENT
  Age: 42 Year
  Sex: Female

DRUGS (7)
  1. SPIRONOLACTONE [Interacting]
     Active Substance: SPIRONOLACTONE
     Indication: Mania
     Dosage: 100 MG, DAILY
  2. SPIRONOLACTONE [Interacting]
     Active Substance: SPIRONOLACTONE
     Dosage: 50 MG, DAILY
  3. LITHIUM [Interacting]
     Active Substance: LITHIUM
     Indication: Mania
     Dosage: UNK
  4. THIORIDAZINE [Concomitant]
     Active Substance: THIORIDAZINE
     Indication: Mania
     Dosage: 100 MG AT NIGHT WERE GIVEN AS NECESSARY
  5. THIORIDAZINE [Concomitant]
     Active Substance: THIORIDAZINE
     Dosage: 100 MG AT NIGHT
  6. PROMETHAZINE [Concomitant]
     Active Substance: PROMETHAZINE HYDROCHLORIDE
     Indication: Mania
     Dosage: 100 MG AT NIGHT WERE GIVEN AS NECESSARY
  7. PROMETHAZINE [Concomitant]
     Active Substance: PROMETHAZINE HYDROCHLORIDE
     Dosage: 100 MG AT NIGHT

REACTIONS (4)
  - Drug interaction [Unknown]
  - Sedation [Recovered/Resolved]
  - Off label use [Unknown]
  - Drug effective for unapproved indication [Unknown]
